FAERS Safety Report 5521535-4 (Version None)
Quarter: 2007Q4

REPORT INFORMATION
  Report Type: 
  Country: None (occurrence: None)
  Receive Date: 20071116
  Receipt Date: 20071116
  Transmission Date: 20080405
  Serious: No
  Sender: FDA-Public Use
  Company Number: None

PATIENT
  Age: 87 Year
  Sex: Male

DRUGS (1)
  1. SILVER SULFADIAZINE [Suspect]
     Dosage: EVERY DAY TOP
     Route: 061
     Dates: start: 20070913, end: 20070913

REACTIONS (1)
  - RASH [None]
